FAERS Safety Report 5077036-3 (Version None)
Quarter: 2006Q3

REPORT INFORMATION
  Report Type: 
  Country: None (occurrence: None)
  Receive Date: 20060810
  Receipt Date: 20030717
  Transmission Date: 20061208
  Serious: Yes (Life-Threatening, Hospitalization, Other)
  Sender: FDA-Public Use
  Company Number: 2003AP02570

PATIENT
  Age: 22219 Day
  Sex: Female

DRUGS (4)
  1. IRESSA [Suspect]
     Indication: LUNG ADENOCARCINOMA
     Route: 048
     Dates: start: 20030604, end: 20030622
  2. GEMCITABINE [Concomitant]
     Dosage: ONE COURSE
     Dates: start: 20030501
  3. IRESSA [Concomitant]
     Route: 048
     Dates: start: 20060201
  4. IRESSA [Concomitant]
     Route: 048

REACTIONS (9)
  - ACUTE RESPIRATORY DISTRESS SYNDROME [None]
  - COUGH [None]
  - DYSPNOEA [None]
  - LUNG CONSOLIDATION [None]
  - LUNG DISORDER [None]
  - LYMPHANGIOSIS CARCINOMATOSA [None]
  - MALIGNANT NEOPLASM PROGRESSION [None]
  - PLEURAL EFFUSION [None]
  - PNEUMONIA [None]
